FAERS Safety Report 16550285 (Version 2)
Quarter: 2019Q3

REPORT INFORMATION
  Report Type: Spontaneous
  Country: US (occurrence: US)
  Receive Date: 20190710
  Receipt Date: 20190916
  Transmission Date: 20191004
  Serious: No
  Sender: FDA-Public Use
  Company Number: US-HTU-2019US018897

PATIENT
  Age: 74 Year
  Sex: Male

DRUGS (10)
  1. SPIRONOLACTONE. [Concomitant]
     Active Substance: SPIRONOLACTONE
  2. VALCHLOR [Suspect]
     Active Substance: MECHLORETHAMINE
     Indication: CUTANEOUS T-CELL LYMPHOMA
     Dosage: UNK, QD
     Route: 061
     Dates: start: 201904, end: 201905
  3. NOVOLOG [Concomitant]
     Active Substance: INSULIN ASPART
  4. LISINOPRIL. [Concomitant]
     Active Substance: LISINOPRIL
  5. TRESIBA [Concomitant]
     Active Substance: INSULIN DEGLUDEC
  6. TRAZODONE [Concomitant]
     Active Substance: TRAZODONE HYDROCHLORIDE
  7. AZELASTINE. [Concomitant]
     Active Substance: AZELASTINE HYDROCHLORIDE
  8. VALCHLOR [Suspect]
     Active Substance: MECHLORETHAMINE
     Dosage: THIN FILM, QD
     Route: 061
     Dates: end: 20190617
  9. FUROSEMID                          /00032601/ [Concomitant]
     Active Substance: FUROSEMIDE
  10. FINASTERIDE. [Concomitant]
     Active Substance: FINASTERIDE

REACTIONS (5)
  - Pain of skin [Not Recovered/Not Resolved]
  - Skin weeping [Recovering/Resolving]
  - Dry skin [Not Recovered/Not Resolved]
  - Scab [Not Recovered/Not Resolved]
  - Application site vesicles [Unknown]

NARRATIVE: CASE EVENT DATE: 201904
